FAERS Safety Report 18954689 (Version 1)
Quarter: 2021Q1

REPORT INFORMATION
  Report Type: Other
  Country: ES (occurrence: GB)
  Receive Date: 20210301
  Receipt Date: 20210301
  Transmission Date: 20210420
  Serious: Yes (Hospitalization, Other)
  Sender: FDA-Public Use
  Company Number: GB-BRECKENRIDGE PHARMACEUTICAL, INC.-2107438

PATIENT
  Age: 78 Year
  Sex: Female

DRUGS (11)
  1. BISOPROLOL. [Concomitant]
     Active Substance: BISOPROLOL FUMARATE
  2. DIAZEPAM. [Concomitant]
     Active Substance: DIAZEPAM
  3. SERTRALINE [Suspect]
     Active Substance: SERTRALINE HYDROCHLORIDE
  4. DULOXETINE. [Suspect]
     Active Substance: DULOXETINE
  5. LANSOPRAZOLE. [Concomitant]
     Active Substance: LANSOPRAZOLE
  6. EDOXABAN [Suspect]
     Active Substance: EDOXABAN TOSYLATE
  7. CLOPIDOGREL [Suspect]
     Active Substance: CLOPIDOGREL BISULFATE
  8. ATORVASTATIN CALCIUM. [Concomitant]
     Active Substance: ATORVASTATIN CALCIUM
  9. AMLODIPINE [Concomitant]
     Active Substance: AMLODIPINE BESYLATE
  10. CODEINE SULFATE. [Concomitant]
     Active Substance: CODEINE SULFATE
  11. RISPERIDONE. [Concomitant]
     Active Substance: RISPERIDONE

REACTIONS (2)
  - Upper gastrointestinal haemorrhage [None]
  - Drug interaction [None]
